FAERS Safety Report 8540060 (Version 3)
Quarter: 2013Q2

REPORT INFORMATION
  Report Type: Report from Study
  Country: JP (occurrence: JP)
  Receive Date: 20120502
  Receipt Date: 20130528
  Transmission Date: 20140414
  Serious: Yes (Hospitalization, Disabling)
  Sender: FDA-Public Use
  Company Number: PHHY2012JP036280

PATIENT
  Age: 80 Year
  Sex: Female

DRUGS (9)
  1. AMN107 [Suspect]
     Indication: CHRONIC MYELOID LEUKAEMIA
     Dosage: 200 MG, DAILY
     Route: 048
     Dates: start: 20091112, end: 20091216
  2. AMN107 [Suspect]
     Dosage: 400 MG, DAILY
     Route: 048
     Dates: start: 20091217, end: 20111109
  3. AMN107 [Suspect]
     Dosage: 450 MG, DAILY
     Route: 048
     Dates: start: 20111110
  4. HERBESSOR R [Concomitant]
     Dosage: 100 MG, UNK
     Route: 048
  5. TANATRIL [Concomitant]
     Dosage: 5 MG, UNK
     Route: 048
  6. MUCOSTA [Concomitant]
     Dosage: 300 MG, UNK
     Route: 048
     Dates: end: 20100609
  7. DEPAS [Concomitant]
     Dosage: 0.5 MG, UNK
     Route: 048
  8. MYSLEE [Concomitant]
     Dosage: 10 MG, UNK
     Route: 048
  9. GASLON [Concomitant]
     Dosage: 2 MG, UNK
     Route: 048
     Dates: start: 20100610

REACTIONS (2)
  - Sudden hearing loss [Not Recovered/Not Resolved]
  - Atrial fibrillation [Recovered/Resolved]
